FAERS Safety Report 13245693 (Version 1)
Quarter: 2017Q1

REPORT INFORMATION
  Report Type: Spontaneous
  Country: US (occurrence: US)
  Receive Date: 20170217
  Receipt Date: 20170217
  Transmission Date: 20170428
  Serious: Yes (Other)
  Sender: FDA-Public Use
  Company Number: US-CELGENEUS-USA-2016105950

PATIENT
  Age: 71 Year

DRUGS (4)
  1. REVLIMID [Suspect]
     Active Substance: LENALIDOMIDE
     Indication: PLASMA CELL MYELOMA
     Route: 048
  2. GRANULOCYTE-COLONY STIMULATING FACTOR [Concomitant]
     Active Substance: FILGRASTIM
     Indication: PLASMA CELL MYELOMA
     Route: 058
  3. PLERIXAFOR [Concomitant]
     Active Substance: PLERIXAFOR
     Indication: PLASMA CELL MYELOMA
     Route: 065
  4. DEXAMETHASONE. [Suspect]
     Active Substance: DEXAMETHASONE
     Indication: PLASMA CELL MYELOMA
     Route: 065

REACTIONS (1)
  - Blood stem cell harvest failure [Unknown]
